FAERS Safety Report 7866379-3 (Version None)
Quarter: 2011Q4

REPORT INFORMATION
  Report Type: 
  Country: None (occurrence: None)
  Receive Date: 20111028
  Receipt Date: 20110607
  Transmission Date: 20120403
  Serious: No
  Sender: FDA-Public Use
  Company Number: US-GLAXOSMITHKLINE-A0930602A

PATIENT
  Age: 64 Year
  Sex: Female

DRUGS (11)
  1. ZANTAC [Concomitant]
  2. PRILOSEC [Concomitant]
  3. NORVASC [Concomitant]
  4. ADVAIR DISKUS 100/50 [Suspect]
     Indication: ASTHMA
     Dosage: 1PUFF TWICE PER DAY
     Route: 055
  5. METOPROLOL TARTRATE [Concomitant]
  6. CARBOPLATIN + PACLITAXEL [Concomitant]
  7. CRESTOR [Concomitant]
  8. MINI ASPIRIN [Concomitant]
  9. PLAVIX [Concomitant]
  10. LOSARTAN POTASSIUM [Concomitant]
  11. GABAPENTIN [Concomitant]

REACTIONS (2)
  - DRUG INEFFECTIVE [None]
  - PRODUCT QUALITY ISSUE [None]
